FAERS Safety Report 6450412-X (Version None)
Quarter: 2009Q4

REPORT INFORMATION
  Report Type: 
  Country: None (occurrence: None)
  Receive Date: 20091123
  Receipt Date: 20091112
  Transmission Date: 20100525
  Serious: Yes (Hospitalization, Other)
  Sender: FDA-Public Use
  Company Number: ES-AMGEN-QUU374352

PATIENT
  Sex: Female

DRUGS (1)
  1. NEULASTA [Suspect]
     Indication: DRUG USE FOR UNKNOWN INDICATION
     Route: 065
     Dates: start: 20091105

REACTIONS (6)
  - BACK PAIN [None]
  - DECREASED APPETITE [None]
  - HEADACHE [None]
  - INFLAMMATION OF WOUND [None]
  - MALAISE [None]
  - URINE OUTPUT DECREASED [None]
